FAERS Safety Report 8770471 (Version 1)
Quarter: 2012Q4

REPORT INFORMATION
  Report Type: 
  Country: JP (occurrence: JP)
  Receive Date: 20120906
  Receipt Date: 20120906
  Transmission Date: 20130627
  Serious: No
  Sender: FDA-Public Use
  Company Number: JP-JNJFOC-20120812949

PATIENT
  Age: 57 Year
  Sex: Male

DRUGS (6)
  1. LIDOCAINE WITH EPINEPHRINE [Suspect]
     Indication: CANCER PAIN
     Route: 062
  2. LIDOCAINE WITH EPINEPHRINE [Suspect]
     Indication: CANCER PAIN
     Route: 062
  3. HALOPERIDOL [Concomitant]
     Indication: VOMITING
     Route: 065
  4. HALOPERIDOL [Concomitant]
     Indication: NAUSEA
     Route: 065
  5. UNSPECIFIED INGREDIENT [Concomitant]
     Indication: PAIN MANAGEMENT
     Route: 065
  6. UNSPECIFIED INGREDIENT [Concomitant]
     Indication: PAIN MANAGEMENT
     Route: 065

REACTIONS (3)
  - Vomiting [Recovered/Resolved]
  - Nausea [Recovered/Resolved]
  - Wrong technique in drug usage process [Unknown]
